FAERS Safety Report 15590036 (Version 1)
Quarter: 2018Q4

REPORT INFORMATION
  Report Type: Spontaneous
  Country: FR (occurrence: FR)
  Receive Date: 20181106
  Receipt Date: 20181106
  Transmission Date: 20190205
  Serious: Yes (Other)
  Sender: FDA-Public Use
  Company Number: FR-MYLANLABS-2018M1082386

PATIENT
  Age: 62 Year
  Sex: Male
  Weight: 83 kg

DRUGS (3)
  1. ETOPOSIDE. [Suspect]
     Active Substance: ETOPOSIDE
     Indication: TESTIS CANCER
     Dosage: 200 MG, 1 CYCLICAL
     Route: 041
     Dates: start: 20180326, end: 20180330
  2. CISPLATIN. [Suspect]
     Active Substance: CISPLATIN
     Indication: TESTIS CANCER
     Dosage: 40 MG, 1 CYCLICAL
     Route: 041
     Dates: start: 20180326, end: 20180330
  3. BLEOMYCINE                         /00183902/ [Suspect]
     Active Substance: BLEOMYCIN SULFATE
     Indication: TESTIS CANCER
     Dosage: 30 MG, CYCLE
     Route: 041
     Dates: start: 20180326, end: 20180330

REACTIONS (2)
  - Cholestasis [Recovering/Resolving]
  - Cell death [Recovered/Resolved]

NARRATIVE: CASE EVENT DATE: 20180416
